FAERS Safety Report 10111196 (Version 4)
Quarter: 2014Q2

REPORT INFORMATION
  Report Type: Spontaneous
  Country: US (occurrence: US)
  Receive Date: 20140425
  Receipt Date: 20140604
  Transmission Date: 20141212
  Serious: Yes (Hospitalization)
  Sender: FDA-Public Use
  Company Number: US-JNJFOC-20140413824

PATIENT
  Age: 72 Year
  Sex: Female
  Weight: 114 kg

DRUGS (17)
  1. XARELTO [Suspect]
     Indication: CEREBROVASCULAR ACCIDENT PROPHYLAXIS
     Route: 048
     Dates: start: 20140221
  2. XARELTO [Suspect]
     Indication: CEREBROVASCULAR ACCIDENT PROPHYLAXIS
     Route: 048
     Dates: start: 20140210, end: 20140214
  3. XARELTO [Suspect]
     Indication: ATRIAL FIBRILLATION
     Route: 048
     Dates: start: 20140221
  4. XARELTO [Suspect]
     Indication: ATRIAL FIBRILLATION
     Route: 048
     Dates: start: 20140210, end: 20140214
  5. ASPIRIN [Suspect]
     Indication: PRODUCT USED FOR UNKNOWN INDICATION
     Route: 065
  6. TRAMADOL [Concomitant]
     Route: 065
  7. SIMVASTATIN [Concomitant]
     Route: 065
  8. FLEXERIL [Concomitant]
     Route: 065
  9. NORCO [Concomitant]
     Dosage: 5-325 PRN
     Route: 065
  10. INSULIN LANTUS [Concomitant]
     Route: 065
  11. NOVOLOG [Concomitant]
     Route: 065
  12. METOPROLOL [Concomitant]
     Route: 065
  13. PROTONIX [Concomitant]
     Route: 065
  14. TORSEMIDE [Concomitant]
     Route: 065
  15. ALLOPURINOL [Concomitant]
     Route: 065
  16. AMIODARONE [Concomitant]
     Route: 065
  17. CYMBALTA [Concomitant]
     Route: 065

REACTIONS (6)
  - Pericardial haemorrhage [Recovered/Resolved]
  - Haemoglobin decreased [Unknown]
  - Nausea [Unknown]
  - Syncope [Unknown]
  - Oedema [Unknown]
  - Atrial fibrillation [Unknown]
